FAERS Safety Report 9794474 (Version 2)
Quarter: 2014Q1

REPORT INFORMATION
  Report Type: Spontaneous
  Country: US (occurrence: US)
  Receive Date: 20140102
  Receipt Date: 20140203
  Transmission Date: 20141002
  Serious: Yes (Death, Hospitalization, Other)
  Sender: FDA-Public Use
  Company Number: US-CELGENEUS-163-POMAL-13125130

PATIENT
  Age: 73 Year
  Sex: Male

DRUGS (10)
  1. POMALYST [Suspect]
     Indication: PLASMA CELL MYELOMA
     Dosage: 4 MILLIGRAM
     Route: 048
     Dates: start: 201303
  2. POMALYST [Suspect]
     Dosage: 4 MILLIGRAM
     Route: 048
     Dates: start: 20130406, end: 2013
  3. POMALYST [Suspect]
     Dosage: 1.5 MILLIGRAM
     Route: 048
     Dates: start: 20131004
  4. POMALYST [Suspect]
     Dosage: 4 MILLIGRAM
     Route: 048
     Dates: start: 201310, end: 201311
  5. MELPHALAN [Concomitant]
     Indication: PLASMA CELL MYELOMA
     Route: 065
     Dates: start: 20130604, end: 2013
  6. TREANDA [Concomitant]
     Indication: PLASMA CELL MYELOMA
     Route: 065
     Dates: start: 201308, end: 2013
  7. KYPROLIS [Concomitant]
     Indication: PLASMA CELL MYELOMA
     Route: 065
     Dates: start: 201308, end: 2013
  8. DEXAMETHASONE [Concomitant]
     Indication: PLASMA CELL MYELOMA
     Route: 048
     Dates: start: 201201
  9. DEXAMETHASONE [Concomitant]
     Route: 048
     Dates: start: 201209
  10. DEXAMETHASONE [Concomitant]
     Route: 048
     Dates: start: 201303

REACTIONS (5)
  - Renal tubular necrosis [Fatal]
  - Pulmonary sepsis [Fatal]
  - Plasma cell myeloma [Fatal]
  - Renal failure [Fatal]
  - Drug ineffective [Not Recovered/Not Resolved]
